FAERS Safety Report 4837703-0 (Version None)
Quarter: 2005Q4

REPORT INFORMATION
  Report Type: 
  Country: None (occurrence: None)
  Receive Date: 20051128
  Receipt Date: 20050103
  Transmission Date: 20060501
  Serious: Yes (Hospitalization, Disabling)
  Sender: FDA-Public Use
  Company Number: DE-MERCK-0501DEU00204

PATIENT
  Age: 61 Year
  Sex: Female
  Weight: 95 kg

DRUGS (6)
  1. VIOXX [Suspect]
     Indication: ARTHRALGIA
     Route: 048
     Dates: start: 20010101, end: 20030101
  2. VIOXX [Suspect]
     Route: 048
     Dates: start: 20030101
  3. VIOXX [Suspect]
     Route: 048
     Dates: start: 20030101
  4. VIOXX [Suspect]
     Indication: BACK PAIN
     Route: 048
     Dates: start: 20010101, end: 20030101
  5. VIOXX [Suspect]
     Route: 048
     Dates: start: 20030101
  6. VIOXX [Suspect]
     Route: 048
     Dates: start: 20030101

REACTIONS (7)
  - CHOLELITHIASIS [None]
  - CORONARY ARTERY DISEASE [None]
  - DYSPNOEA [None]
  - EXERCISE TOLERANCE DECREASED [None]
  - FATIGUE [None]
  - HELICOBACTER GASTRITIS [None]
  - MYOCARDIAL INFARCTION [None]
